FAERS Safety Report 18406655 (Version 3)
Quarter: 2020Q4

REPORT INFORMATION
  Report Type: Spontaneous
  Country: US (occurrence: US)
  Receive Date: 20201021
  Receipt Date: 20201208
  Transmission Date: 20210114
  Serious: Yes (Other)
  Sender: FDA-Public Use
  Company Number: US-SA-2020SA220810

PATIENT

DRUGS (1)
  1. DUPIXENT [Suspect]
     Active Substance: DUPILUMAB
     Indication: DERMATITIS ATOPIC
     Dosage: 300 MG, QOW
     Route: 058
     Dates: start: 20200625

REACTIONS (4)
  - Myopia [Unknown]
  - Photophobia [Unknown]
  - Visual impairment [Unknown]
  - Blindness [Unknown]

NARRATIVE: CASE EVENT DATE: 2020
